FAERS Safety Report 8957418 (Version 2)
Quarter: 2015Q1

REPORT INFORMATION
  Report Type: Report from Study
  Country: FR (occurrence: FR)
  Receive Date: 20121210
  Receipt Date: 20150220
  Transmission Date: 20150721
  Serious: Yes (Hospitalization)
  Sender: FDA-Public Use
  Company Number: FR-ROCHE-742859

PATIENT
  Age: 48 Year
  Sex: Female

DRUGS (28)
  1. RITUXIMAB [Suspect]
     Active Substance: RITUXIMAB
     Dosage: SECOND INFUSION OF RITUXIMAB (D 15)
     Route: 041
  2. RITUXIMAB [Suspect]
     Active Substance: RITUXIMAB
     Dosage: OTHER INFUSION OF RITUXIMAB
     Route: 041
  3. CORTANCYL [Concomitant]
     Active Substance: PREDNISONE
     Dosage: (5 MG/DAY FOR THE 1ST INFUSION, 6 MG/DAY FOR THE 2ND INFUSION)
     Route: 065
  4. METHOTREXATE [Concomitant]
     Active Substance: METHOTREXATE
     Dosage: 20 MG/WEEK
     Route: 065
  5. RITUXIMAB [Suspect]
     Active Substance: RITUXIMAB
     Dosage: SECOND INFUSION OF RITUXIMAB (D15)
     Route: 041
  6. RITUXIMAB [Suspect]
     Active Substance: RITUXIMAB
     Dosage: SECOND INFUSION OF RITUXIMAB (D 15)
     Route: 041
  7. RITUXIMAB [Suspect]
     Active Substance: RITUXIMAB
     Dosage: OTHER INFUSION OF RITUXIMAB
     Route: 041
  8. RITUXIMAB [Suspect]
     Active Substance: RITUXIMAB
     Dosage: OTHER INFUSION OF RITUXIMAB
     Route: 041
  9. RITUXIMAB [Suspect]
     Active Substance: RITUXIMAB
     Dosage: OTHER INFUSION MODALITY OF RITUXIMAB
     Route: 041
  10. VOLTAREN [Concomitant]
     Active Substance: DICLOFENAC SODIUM
     Indication: PAIN
     Dosage: ACCORDING TO PAIN
     Route: 065
  11. INIPOMP [Concomitant]
     Active Substance: PANTOPRAZOLE SODIUM
     Route: 065
  12. SPECIAFOLDINE [Concomitant]
     Active Substance: FOLIC ACID
  13. CORTANCYL [Concomitant]
     Active Substance: PREDNISONE
     Dosage: 5 MG/DAY
     Route: 065
  14. RITUXIMAB [Suspect]
     Active Substance: RITUXIMAB
     Indication: RHEUMATOID ARTHRITIS
     Dosage: FIRST INFUSION OF RITUXIMAB (D1)
     Route: 041
  15. METHOTREXATE [Concomitant]
     Active Substance: METHOTREXATE
     Dosage: FOR 13 MONTHS
     Route: 065
  16. RITUXIMAB [Suspect]
     Active Substance: RITUXIMAB
     Dosage: PATIENT RECEIVED THIRD AND LAST CYCLE.
     Route: 041
     Dates: start: 20080930, end: 20100518
  17. RITUXIMAB [Suspect]
     Active Substance: RITUXIMAB
     Dosage: SECOND INFUSION OF RITUXIMAB (D 15)
     Route: 041
  18. RITUXIMAB [Suspect]
     Active Substance: RITUXIMAB
     Dosage: OTHER INFUSION OF RITUXIMAB
     Route: 041
  19. RITUXIMAB [Suspect]
     Active Substance: RITUXIMAB
     Dosage: OTHER INFUSION OF RITUXIMAB
     Route: 041
  20. RITUXIMAB [Suspect]
     Active Substance: RITUXIMAB
     Dosage: SECOND INFUSION OF RITUXIMAB (D 15)
     Route: 041
  21. RITUXIMAB [Suspect]
     Active Substance: RITUXIMAB
     Dosage: SECOND INFUSION OF RITUXIMAB (D 15)
     Route: 041
  22. RITUXIMAB [Suspect]
     Active Substance: RITUXIMAB
     Dosage: OTHER INFUSION OF RITUXIMAB
     Route: 041
  23. RITUXIMAB [Suspect]
     Active Substance: RITUXIMAB
     Dosage: SECOND INFUSION OF RITUXIMAB (D 15)
     Route: 041
  24. RITUXIMAB [Suspect]
     Active Substance: RITUXIMAB
     Dosage: OTHER INFUSION MODALITY OF RITUXIMAB
     Route: 041
  25. CORTANCYL [Concomitant]
     Active Substance: PREDNISONE
     Dosage: 7 MG/DAY
     Route: 065
  26. RITUXIMAB [Suspect]
     Active Substance: RITUXIMAB
     Dosage: OTHER INFUSION OF RITUXIMAB
     Route: 041
  27. RITUXIMAB [Suspect]
     Active Substance: RITUXIMAB
     Dosage: SECOND INFUSION OF RITUXIMAB (D 15)
     Route: 041
  28. RITUXIMAB [Suspect]
     Active Substance: RITUXIMAB
     Dosage: OTHER INFUSION MODALITY OF RITUXIMAB
     Route: 041

REACTIONS (15)
  - Melanocytic naevus [Not Recovered/Not Resolved]
  - Paraesthesia [Not Recovered/Not Resolved]
  - Diarrhoea [Recovered/Resolved]
  - Skin ulcer [Not Recovered/Not Resolved]
  - Malignant melanoma [Recovered/Resolved]
  - Lichen planus [Unknown]
  - Skin lesion [Not Recovered/Not Resolved]
  - Tooth disorder [Unknown]
  - Melanocytic naevus [Not Recovered/Not Resolved]
  - Nodular melanoma [Not Recovered/Not Resolved]
  - Seborrhoeic keratosis [Not Recovered/Not Resolved]
  - Dry eye [Unknown]
  - Rash erythematous [Unknown]
  - Skin lesion [Unknown]
  - Weight decreased [Not Recovered/Not Resolved]

NARRATIVE: CASE EVENT DATE: 20080222
